FAERS Safety Report 6164487-9 (Version None)
Quarter: 2009Q2

REPORT INFORMATION
  Report Type: 
  Country: None (occurrence: None)
  Receive Date: 20090421
  Receipt Date: 20090407
  Transmission Date: 20091009
  Serious: Yes (Other)
  Sender: FDA-Public Use
  Company Number: 8044610

PATIENT

DRUGS (1)
  1. KEPPRA [Suspect]
     Dosage: 2/D PO
     Route: 048
     Dates: start: 20090101

REACTIONS (2)
  - INCORRECT DOSE ADMINISTERED [None]
  - MEDICATION ERROR [None]
